FAERS Safety Report 13176725 (Version 1)
Quarter: 2017Q1

REPORT INFORMATION
  Report Type: Spontaneous
  Country: US (occurrence: US)
  Receive Date: 20170201
  Receipt Date: 20170201
  Transmission Date: 20170428
  Serious: Yes (Hospitalization)
  Sender: FDA-Public Use
  Company Number: US-BAUSCH-BL-2017-002339

PATIENT
  Sex: Female

DRUGS (3)
  1. XIFAXAN [Suspect]
     Active Substance: RIFAXIMIN
     Indication: LIVER DISORDER
     Route: 048
  2. LACTULOSE. [Concomitant]
     Active Substance: LACTULOSE
     Indication: PRODUCT USED FOR UNKNOWN INDICATION
  3. XIFAXAN [Suspect]
     Active Substance: RIFAXIMIN
     Route: 048

REACTIONS (2)
  - Encephalopathy [Recovered/Resolved]
  - Confusional state [Recovered/Resolved]
